FAERS Safety Report 7865105-1 (Version None)
Quarter: 2011Q4

REPORT INFORMATION
  Report Type: 
  Country: None (occurrence: None)
  Receive Date: 20111028
  Receipt Date: 20101014
  Transmission Date: 20120403
  Serious: No
  Sender: FDA-Public Use
  Company Number: US-GLAXOSMITHKLINE-A0886736A

PATIENT
  Age: 54 Year
  Sex: Female

DRUGS (10)
  1. GLUCOSAMINE/CHONDROITIN [Concomitant]
  2. METHOCARBAMOL [Concomitant]
  3. IBUPROFEN (ADVIL) [Concomitant]
  4. VERAPAMIL [Concomitant]
  5. VITAMIN D CALCIUM [Concomitant]
  6. SINGULAIR [Concomitant]
  7. ADVAIR DISKUS 100/50 [Suspect]
     Indication: ASTHMA
     Dosage: 1PUFF TWICE PER DAY
     Route: 055
     Dates: start: 20080101
  8. NASONEX [Concomitant]
  9. SYNTHROID [Concomitant]
  10. ESTRACE [Concomitant]

REACTIONS (3)
  - DYSPNOEA [None]
  - CHEST PAIN [None]
  - PRODUCT QUALITY ISSUE [None]
